FAERS Safety Report 19841082 (Version 1)
Quarter: 2021Q3

REPORT INFORMATION
  Report Type: Other
  Country: US (occurrence: US)
  Receive Date: 20210916
  Receipt Date: 20210916
  Transmission Date: 20211014
  Serious: No
  Sender: FDA-Public Use
  Company Number: US-LEADIANT BIOSCIENCES INC-2021STPI000052

PATIENT
  Sex: Female

DRUGS (5)
  1. SERTRALINE [Concomitant]
     Active Substance: SERTRALINE HYDROCHLORIDE
  2. MATULANE [Suspect]
     Active Substance: PROCARBAZINE HYDROCHLORIDE
     Indication: BRAIN NEOPLASM MALIGNANT
     Dosage: 50 MILLIGRAM, QD, 3 CAPSULES ON DAYS 8 TO 12 OF EACH 28 DAY CYCLE
     Route: 048
     Dates: start: 20210115
  3. GLEOSTINE [Concomitant]
     Active Substance: LOMUSTINE
  4. KEPPRA [Concomitant]
     Active Substance: LEVETIRACETAM
  5. CLOBAZAM. [Concomitant]
     Active Substance: CLOBAZAM

REACTIONS (1)
  - Nausea [Unknown]
